FAERS Safety Report 9613028 (Version 2)
Quarter: 2013Q4

REPORT INFORMATION
  Report Type: Report from Study
  Country: PR (occurrence: PR)
  Receive Date: 20131010
  Receipt Date: 20131010
  Transmission Date: 20140711
  Serious: Yes (Other)
  Sender: FDA-Public Use
  Company Number: PR-ABBVIE-13P-131-1142781-00

PATIENT
  Age: 53 Year
  Sex: Female
  Weight: 81.72 kg

DRUGS (5)
  1. HUMIRA [Suspect]
     Indication: RHEUMATOID ARTHRITIS
     Route: 058
     Dates: start: 2012, end: 201308
  2. NEURONTIN [Concomitant]
     Indication: ARTHRITIS
     Route: 048
  3. FOLIC ACID [Concomitant]
     Indication: VITAMIN SUPPLEMENTATION
     Route: 048
  4. METHOTREXATE [Concomitant]
     Indication: ARTHRITIS
     Route: 048
  5. PREDNISONE [Concomitant]
     Indication: ARTHRITIS

REACTIONS (1)
  - Breast cancer [Not Recovered/Not Resolved]
